FAERS Safety Report 4565110-7 (Version None)
Quarter: 2005Q1

REPORT INFORMATION
  Report Type: 
  Country: None (occurrence: None)
  Receive Date: 20050110
  Receipt Date: 20050110
  Transmission Date: 20050727
  Serious: Yes (Other)
  Sender: FDA-Public Use
  Company Number: None

PATIENT
  Sex: Female

DRUGS (2)
  1. DOXAZOSIN  2 MG PLIVA [Suspect]
     Indication: HYPERTENSION
     Dosage: 2 MG ONE BID
     Dates: start: 20040923, end: 20040929
  2. DOXAZOSIN  2 MG PLIVA [Suspect]
     Indication: HYPERTENSION
     Dosage: 2 MG ONE BID
     Dates: start: 20020101

REACTIONS (4)
  - ASTHENIA [None]
  - BALANCE DISORDER [None]
  - NAUSEA [None]
  - TREMOR [None]
